FAERS Safety Report 7488367-1 (Version None)
Quarter: 2011Q2

REPORT INFORMATION
  Report Type: 
  Country: None (occurrence: None)
  Receive Date: 20110511
  Receipt Date: 20110503
  Transmission Date: 20111010
  Serious: Yes (Death, Hospitalization)
  Sender: FDA-Public Use
  Company Number: 2011CP000072

PATIENT
  Age: 76 Year
  Sex: Male

DRUGS (1)
  1. OFIRMEV [Suspect]
     Indication: PYREXIA
     Dosage: 1 GM;X1;IV
     Route: 042
     Dates: start: 20110415, end: 20110415

REACTIONS (5)
  - METABOLIC ACIDOSIS [None]
  - MULTI-ORGAN FAILURE [None]
  - RESPIRATORY FAILURE [None]
  - CARDIAC ARREST [None]
  - SEPTIC SHOCK [None]
